FAERS Safety Report 5363047-7 (Version None)
Quarter: 2007Q2

REPORT INFORMATION
  Report Type: 
  Country: None (occurrence: None)
  Receive Date: 20070618
  Receipt Date: 20070605
  Transmission Date: 20071010
  Serious: Yes (Other)
  Sender: FDA-Public Use
  Company Number: 2007-02707

PATIENT
  Sex: Male

DRUGS (2)
  1. PREDNISONE TAB [Suspect]
     Dosage: ORAL
     Route: 048
     Dates: start: 20060307
  2. PREDNISONE [Suspect]
     Dosage: ORAL
     Route: 048
     Dates: start: 20060307

REACTIONS (4)
  - BLINDNESS [None]
  - CHORIORETINOPATHY [None]
  - VITREOUS FLOATERS [None]
  - XANTHOPSIA [None]
